FAERS Safety Report 9947837 (Version 1)
Quarter: 2014Q1

REPORT INFORMATION
  Report Type: Report from Study
  Country: US (occurrence: US)
  Receive Date: 20140303
  Receipt Date: 20140303
  Transmission Date: 20141002
  Serious: No
  Sender: FDA-Public Use
  Company Number: US-ABBVIE-13P-163-1060856-00

PATIENT
  Age: 10 Year
  Sex: Male
  Weight: 31.78 kg

DRUGS (2)
  1. HUMIRA [Suspect]
     Indication: CROHN^S DISEASE
     Dates: start: 20130306, end: 20130306
  2. BUDESONIDE [Concomitant]
     Indication: CROHN^S DISEASE

REACTIONS (3)
  - Off label use [Not Recovered/Not Resolved]
  - Wrong technique in drug usage process [Unknown]
  - Incorrect dose administered [Unknown]
